FAERS Safety Report 15270844 (Version 1)
Quarter: 2018Q3

REPORT INFORMATION
  Report Type: Spontaneous
  Country: US (occurrence: US)
  Receive Date: 20180813
  Receipt Date: 20180813
  Transmission Date: 20181010
  Serious: No
  Sender: FDA-Public Use
  Company Number: US-SA-2018SA220488

PATIENT

DRUGS (1)
  1. ALLEGRA ALLERGY [Suspect]
     Active Substance: FEXOFENADINE HYDROCHLORIDE
     Indication: PRODUCT USED FOR UNKNOWN INDICATION

REACTIONS (6)
  - Eczema [Unknown]
  - Urticaria [Unknown]
  - Lip swelling [Unknown]
  - Allergy to animal [Unknown]
  - Drug ineffective [Unknown]
  - Eye swelling [Unknown]
